FAERS Safety Report 15782494 (Version 1)
Quarter: 2019Q1

REPORT INFORMATION
  Report Type: Spontaneous
  Country: FR (occurrence: FR)
  Receive Date: 20190102
  Receipt Date: 20190102
  Transmission Date: 20190417
  Serious: Yes (Hospitalization)
  Sender: FDA-Public Use
  Company Number: FR-TEVA-2018-FR-994187

PATIENT
  Age: 72 Year
  Sex: Male
  Weight: 53 kg

DRUGS (7)
  1. FUROSEMIDE. [Concomitant]
     Active Substance: FUROSEMIDE
     Indication: ACUTE PULMONARY OEDEMA
     Dosage: 1000 MILLIGRAM DAILY;
     Route: 048
     Dates: start: 20181025
  2. AMIODARONE (CHLORHYDRATE D^) [Suspect]
     Active Substance: AMIODARONE HYDROCHLORIDE
     Indication: ATRIAL FIBRILLATION
     Dosage: 800 MILLIGRAM DAILY;
     Route: 048
     Dates: start: 20181119, end: 20181122
  3. COUMADINE [Suspect]
     Active Substance: WARFARIN SODIUM
     Indication: ANTICOAGULANT THERAPY
     Dosage: 2 MILLIGRAM DAILY;
     Route: 048
     Dates: start: 20181119, end: 20181122
  4. LANSOPRAZOLE. [Concomitant]
     Active Substance: LANSOPRAZOLE
     Indication: GASTROOESOPHAGEAL REFLUX DISEASE
     Dosage: 15 MILLIGRAM DAILY;
     Route: 048
     Dates: start: 20181025
  5. AMLODIPINE [Concomitant]
     Active Substance: AMLODIPINE BESYLATE
     Indication: HYPERTENSION
     Dosage: 10 MILLIGRAM DAILY;
     Route: 048
     Dates: start: 20181025
  6. RENVELA [Concomitant]
     Active Substance: SEVELAMER CARBONATE
     Indication: BLOOD PHOSPHORUS INCREASED
     Dosage: 7.2 GRAM DAILY;
     Route: 048
     Dates: start: 20181025
  7. LORAZEPAM. [Concomitant]
     Active Substance: LORAZEPAM
     Indication: ANXIETY
     Dosage: 1 MILLIGRAM DAILY;
     Route: 048

REACTIONS (2)
  - Hepatocellular injury [Recovered/Resolved]
  - Abdominal pain [Recovered/Resolved]

NARRATIVE: CASE EVENT DATE: 20181123
